FAERS Safety Report 5306826-4 (Version None)
Quarter: 2007Q2

REPORT INFORMATION
  Report Type: 
  Country: None (occurrence: None)
  Receive Date: 20070425
  Receipt Date: 20070417
  Transmission Date: 20071010
  Serious: Yes (Other)
  Sender: FDA-Public Use
  Company Number: HQWYE619018APR07

PATIENT
  Age: 70 Year
  Sex: Male

DRUGS (2)
  1. TYGACIL [Suspect]
     Indication: INFECTION
     Dosage: 100 MG INITIAL, THEN 50 MG EVERY 12 HOURS
     Route: 042
     Dates: start: 20070101
  2. FORTAZ [Concomitant]

REACTIONS (3)
  - COAGULOPATHY [None]
  - HYPERBILIRUBINAEMIA [None]
  - LIVER FUNCTION TEST ABNORMAL [None]
